FAERS Safety Report 5364880-8 (Version None)
Quarter: 2007Q2

REPORT INFORMATION
  Report Type: 
  Country: None (occurrence: None)
  Receive Date: 20070621
  Receipt Date: 20070611
  Transmission Date: 20071010
  Serious: Yes (Hospitalization, Other)
  Sender: FDA-Public Use
  Company Number: GR-NOVOPROD-264574

PATIENT
  Age: 29 Year
  Sex: Female
  Weight: 93 kg

DRUGS (1)
  1. NOVOLOG MIX 70/30 [Suspect]
     Indication: DRUG USE FOR UNKNOWN INDICATION
     Dates: start: 20060207

REACTIONS (2)
  - PREGNANCY [None]
  - PREMATURE RUPTURE OF MEMBRANES [None]
